FAERS Safety Report 5282648-8 (Version None)
Quarter: 2007Q1

REPORT INFORMATION
  Report Type: 
  Country: None (occurrence: None)
  Receive Date: 20070326
  Receipt Date: 20070314
  Transmission Date: 20070707
  Serious: Yes (Death, Congenital Anomaly)
  Sender: FDA-Public Use
  Company Number: E2B_00010241

PATIENT

DRUGS (2)
  1. METFORMIN HCL [Suspect]
     Indication: POLYCYSTIC OVARIES
     Route: 064
  2. ACETYLSALISYLSYRE (ACETYLSALICYLIC ACID) [Concomitant]

REACTIONS (7)
  - DRUG EXPOSURE DURING PREGNANCY [None]
  - ERYTHROBLASTOSIS FOETALIS [None]
  - HYDROPS FOETALIS [None]
  - INTRA-UTERINE DEATH [None]
  - LUNG DISORDER [None]
  - OEDEMA [None]
  - SPLEEN DISORDER [None]
